FAERS Safety Report 15506590 (Version 9)
Quarter: 2020Q1

REPORT INFORMATION
  Report Type: Spontaneous
  Country: JP (occurrence: JP)
  Receive Date: 20181016
  Receipt Date: 20200113
  Transmission Date: 20200409
  Serious: Yes (Other)
  Sender: FDA-Public Use
  Company Number: JP-BRISTOL-MYERS SQUIBB COMPANY-BMS-2018-096153

PATIENT
  Age: 64 Year
  Sex: Male

DRUGS (1)
  1. OPDIVO [Suspect]
     Active Substance: NIVOLUMAB
     Indication: GASTRIC CANCER
     Dosage: UNK, Q2WK
     Route: 041
     Dates: start: 20180809, end: 20180906

REACTIONS (5)
  - Cholangitis [Recovering/Resolving]
  - Drug-induced liver injury [Recovering/Resolving]
  - Dermatitis psoriasiform [Recovering/Resolving]
  - Interstitial lung disease [Recovering/Resolving]
  - Liver disorder [Unknown]

NARRATIVE: CASE EVENT DATE: 20180920
